FAERS Safety Report 14123179 (Version 1)
Quarter: 2017Q4

REPORT INFORMATION
  Report Type: Spontaneous
  Country: US (occurrence: US)
  Receive Date: 20171025
  Receipt Date: 20171025
  Transmission Date: 20180321
  Serious: No
  Sender: FDA-Public Use
  Company Number: US-SHIRE-US201722413

PATIENT

DRUGS (1)
  1. CINRYZE [Suspect]
     Active Substance: HUMAN C1-ESTERASE INHIBITOR
     Indication: HEREDITARY ANGIOEDEMA
     Dosage: 2 VIALS EVERY 3 DAYS
     Route: 065

REACTIONS (4)
  - Memory impairment [Unknown]
  - Incorrect dose administered [Unknown]
  - Malaise [Unknown]
  - Hereditary angioedema [Unknown]
